FAERS Safety Report 19878309 (Version 1)
Quarter: 2021Q3

REPORT INFORMATION
  Report Type: Spontaneous
  Country: US (occurrence: US)
  Receive Date: 20210923
  Receipt Date: 20210923
  Transmission Date: 20211014
  Serious: Yes (Other)
  Sender: FDA-Public Use
  Company Number: None

PATIENT
  Age: 76 Year
  Sex: Male
  Weight: 77.9 kg

DRUGS (5)
  1. CIFTRIAXONE [Concomitant]
  2. CEFEPIME [Concomitant]
     Active Substance: CEFEPIME HYDROCHLORIDE
  3. TBO?FILGRASTIM [Concomitant]
     Active Substance: TBO-FILGRASTIM
  4. DEXAMETHASONE. [Concomitant]
     Active Substance: DEXAMETHASONE
  5. REGEN?COV [Suspect]
     Active Substance: CASIRIVIMAB\IMDEVIMAB
     Indication: COVID-19
     Dosage: ?          OTHER DOSE:600/600 MG;?
     Route: 042
     Dates: start: 20210918, end: 20210918

REACTIONS (2)
  - Blood pressure immeasurable [None]
  - Supraventricular tachycardia [None]

NARRATIVE: CASE EVENT DATE: 20210918
